FAERS Safety Report 7353414-4 (Version None)
Quarter: 2011Q1

REPORT INFORMATION
  Report Type: 
  Country: None (occurrence: None)
  Receive Date: 20110315
  Receipt Date: 20110304
  Transmission Date: 20110831
  Serious: Yes (Other)
  Sender: FDA-Public Use
  Company Number: US-JNJFOC-20110303435

PATIENT
  Sex: Female
  Weight: 96.6 kg

DRUGS (9)
  1. KLONOPIN [Concomitant]
     Indication: HYPERTENSION
     Route: 065
  2. OMEPRAZOLE [Concomitant]
     Indication: GASTROOESOPHAGEAL REFLUX DISEASE
     Route: 065
  3. NICOTROL [Suspect]
     Indication: SMOKING CESSATION THERAPY
     Route: 045
  4. SYNTHROID [Concomitant]
     Indication: THYROID DISORDER
     Route: 065
  5. LISINOPRIL [Concomitant]
     Indication: HYPERTENSION
     Route: 065
  6. CYMBALTA [Concomitant]
     Indication: DEPRESSION
     Route: 065
  7. ATENOLOL [Concomitant]
     Indication: HYPERTENSION
     Route: 065
  8. BUPROPION [Concomitant]
     Indication: DEPRESSION
     Route: 065
  9. ELAVIL [Concomitant]
     Indication: RESTLESS LEGS SYNDROME
     Route: 065

REACTIONS (3)
  - DRUG INEFFECTIVE [None]
  - CHOKING [None]
  - COUGH [None]
